FAERS Safety Report 7659688-4 (Version None)
Quarter: 2011Q3

REPORT INFORMATION
  Report Type: 
  Country: None (occurrence: None)
  Receive Date: 20110805
  Receipt Date: 20110804
  Transmission Date: 20111222
  Serious: Yes (Other)
  Sender: FDA-Public Use
  Company Number: CA-JNJFOC-20110709348

PATIENT
  Age: 69 Year
  Sex: Female
  Weight: 50.8 kg

DRUGS (3)
  1. LISTERINE ZERO MOUTHWASH CLEAN MINT [Suspect]
     Indication: DENTAL DISORDER PROPHYLAXIS
     Route: 048
     Dates: start: 20110618, end: 20110622
  2. MULTI-VITAMINS [Concomitant]
     Indication: PRODUCT USED FOR UNKNOWN INDICATION
     Route: 065
  3. ANTIHYPERTENSIVE (NOS) [Concomitant]
     Indication: HYPERTENSION
     Route: 065

REACTIONS (3)
  - SKIN EXFOLIATION [None]
  - PRODUCT QUALITY ISSUE [None]
  - ORAL DISCOMFORT [None]
